FAERS Safety Report 7312821-6 (Version None)
Quarter: 2011Q1

REPORT INFORMATION
  Report Type: 
  Country: None (occurrence: None)
  Receive Date: 20110224
  Receipt Date: 20100517
  Transmission Date: 20110831
  Serious: No
  Sender: FDA-Public Use
  Company Number: US-MYLANLABS-2010S1006529

PATIENT
  Age: 55 Year
  Sex: Female
  Weight: 65.77 kg

DRUGS (10)
  1. RAPAMUNE [Concomitant]
     Indication: PROPHYLAXIS AGAINST TRANSPLANT REJECTION
     Dates: start: 20020101
  2. B100 [Concomitant]
  3. DIGOXIN [Suspect]
     Indication: ATRIAL FIBRILLATION
     Route: 048
     Dates: start: 20100204, end: 20100401
  4. ESTER C /00008001/ [Concomitant]
  5. GENGRAF [Concomitant]
     Indication: PROPHYLAXIS AGAINST TRANSPLANT REJECTION
     Dates: start: 20020101
  6. FERROUS SULFATE TAB [Concomitant]
  7. FOLIC ACID [Concomitant]
  8. VITAMIN B-12 [Concomitant]
  9. MULTIVITAMIN [Concomitant]
  10. METOPROLOL TARTRATE [Suspect]
     Indication: HYPERTENSION
     Route: 048
     Dates: start: 20100214

REACTIONS (18)
  - SKIN ULCER [None]
  - FATIGUE [None]
  - HAEMATOCRIT DECREASED [None]
  - VISUAL IMPAIRMENT [None]
  - PAIN OF SKIN [None]
  - ASTHENIA [None]
  - TENDON PAIN [None]
  - MYALGIA [None]
  - APATHY [None]
  - PHOTOPHOBIA [None]
  - LIVER FUNCTION TEST ABNORMAL [None]
  - BLOOD ALKALINE PHOSPHATASE ABNORMAL [None]
  - DECREASED APPETITE [None]
  - HYPERAESTHESIA [None]
  - PARAESTHESIA [None]
  - ARTHRALGIA [None]
  - OEDEMA PERIPHERAL [None]
  - PRURITUS [None]
